FAERS Safety Report 9931321 (Version 4)
Quarter: 2014Q1

REPORT INFORMATION
  Report Type: Spontaneous
  Country: JP (occurrence: JP)
  Receive Date: 20140228
  Receipt Date: 20140321
  Transmission Date: 20141002
  Serious: Yes (Hospitalization)
  Sender: FDA-Public Use
  Company Number: JP-MERCK-1312JPN011147

PATIENT
  Age: 89 Year
  Sex: Male

DRUGS (8)
  1. REFLEX [Suspect]
     Indication: DEPRESSION
     Dosage: DAILY DOSE 15 MG
     Route: 048
     Dates: end: 20131210
  2. RIZE [Suspect]
     Indication: HYPOCHONDRIASIS
     Dosage: DAILY DOSE 15 MG
     Route: 048
     Dates: end: 20131210
  3. PRAVASTATIN SODIUM [Concomitant]
     Indication: HYPERLIPIDAEMIA
     Dosage: DAILY DOSE 10 MG
     Route: 048
  4. AZILSARTAN [Concomitant]
     Indication: HYPERTENSION
     Dosage: DAILY DOSE 20 MG
     Route: 048
     Dates: end: 20131210
  5. RILMAZAFONE HYDROCHLORIDE [Concomitant]
     Indication: INSOMNIA
     Dosage: DAILY DOSE 1MG
     Route: 048
     Dates: end: 20131210
  6. LANSOPRAZOLE [Concomitant]
     Indication: GASTROOESOPHAGEAL REFLUX DISEASE
     Dosage: DAILY DOSE 15MG
     Route: 048
  7. TELMISARTAN [Concomitant]
     Indication: PRODUCT USED FOR UNKNOWN INDICATION
     Dosage: DAILY DOSE 40MG
     Route: 048
     Dates: start: 20131210
  8. BROTIZOLAM [Concomitant]
     Indication: PRODUCT USED FOR UNKNOWN INDICATION
     Dosage: DAILY DOSE 0.25MG
     Route: 048
     Dates: start: 20131210

REACTIONS (1)
  - Loss of consciousness [Recovered/Resolved]
